FAERS Safety Report 19313743 (Version 2)
Quarter: 2021Q2

REPORT INFORMATION
  Report Type: Spontaneous
  Country: US (occurrence: US)
  Receive Date: 20210527
  Receipt Date: 20210604
  Transmission Date: 20210717
  Serious: Yes (Other)
  Sender: FDA-Public Use
  Company Number: US-PFIZER INC-2021578731

PATIENT
  Age: 18 Year
  Sex: Female

DRUGS (5)
  1. CISPLATIN. [Suspect]
     Active Substance: CISPLATIN
     Indication: OSTEOSARCOMA METASTATIC
     Dosage: ON WEEKS 1 AND 6 (TWO CONSECUTIVE DAYS)
  2. METHOTREXATE SODIUM. [Suspect]
     Active Substance: METHOTREXATE SODIUM
     Indication: OSTEOSARCOMA METASTATIC
     Dosage: 3 G/M2 (WEEK 4,5,9 AND 10 OF THERAPY (25% OF PROTOCOL DOSE) )
  3. FOLINIC ACID [Suspect]
     Active Substance: LEUCOVORIN
     Indication: OSTEOSARCOMA METASTATIC
     Dosage: HIGH DOSE (WEEK 4,5,9 AND 10 OF THERAPY)
  4. DOXORUBICIN HCL [Suspect]
     Active Substance: DOXORUBICIN HYDROCHLORIDE
     Indication: OSTEOSARCOMA METASTATIC
     Dosage: ON WEEKS 1 AND 6 (TWO CONSECUTIVE DAYS)
  5. MANNITOL. [Concomitant]
     Active Substance: MANNITOL
     Indication: BALANCE DISORDER
     Dosage: UNK

REACTIONS (1)
  - Mucosal inflammation [Unknown]
